FAERS Safety Report 9654652 (Version 2)
Quarter: 2013Q4

REPORT INFORMATION
  Report Type: Spontaneous
  Country: US (occurrence: US)
  Receive Date: 20131029
  Receipt Date: 20131204
  Transmission Date: 20140711
  Serious: No
  Sender: FDA-Public Use
  Company Number: US-BIOGENIDEC-2013BI085541

PATIENT
  Sex: Female

DRUGS (18)
  1. TECFIDERA [Suspect]
     Indication: MULTIPLE SCLEROSIS
     Route: 048
     Dates: start: 20130814
  2. TECFIDERA [Suspect]
     Indication: MULTIPLE SCLEROSIS
     Route: 048
     Dates: start: 20130814
  3. AMPYRA [Concomitant]
  4. BACLOFEN [Concomitant]
  5. FLONASE [Concomitant]
  6. FUROSEMIDE [Concomitant]
  7. GABAPENTIN [Concomitant]
  8. HYDROCHLOROTHIAZIDE [Concomitant]
  9. LABETALOL HCL [Concomitant]
  10. LANTUS SOLOSTAR [Concomitant]
  11. LEXAPRO [Concomitant]
  12. LISINOPRIL [Concomitant]
  13. MUCINEX [Concomitant]
  14. NOVOLOG FLEXPEN [Concomitant]
  15. NUVIGIL [Concomitant]
  16. PROVIGIL [Concomitant]
  17. WELBUTRIN [Concomitant]
  18. ZYRTEC [Concomitant]

REACTIONS (4)
  - Flushing [Not Recovered/Not Resolved]
  - Pruritus [Unknown]
  - Diarrhoea [Unknown]
  - Rash [Not Recovered/Not Resolved]
